FAERS Safety Report 16213389 (Version 2)
Quarter: 2019Q3

REPORT INFORMATION
  Report Type: Spontaneous
  Country: GR (occurrence: GR)
  Receive Date: 20190418
  Receipt Date: 20190805
  Transmission Date: 20191004
  Serious: No
  Sender: FDA-Public Use
  Company Number: GR-NALPROPION PHARMACEUTICALS INC.-2019-007069

PATIENT

DRUGS (2)
  1. MYSIMBA (NALTREXONE HCL/BUPROPION HCL) PROLONGED-RELEASE TABLETS [Suspect]
     Active Substance: BUPROPION HYDROCHLORIDE\NALTREXONE HYDROCHLORIDE
     Dosage: 1 TAB, QD (8 CONSECUTIVE DAYS IN MORNING)
     Route: 065
     Dates: start: 201904
  2. MYSIMBA (NALTREXONE HCL/BUPROPION HCL) PROLONGED-RELEASE TABLETS [Suspect]
     Active Substance: BUPROPION HYDROCHLORIDE\NALTREXONE HYDROCHLORIDE
     Indication: WEIGHT CONTROL
     Dosage: 4 TRAYS (4 CONSECUTIVE DAYS IN MORNING)
     Route: 065
     Dates: start: 201903

REACTIONS (3)
  - Menorrhagia [Unknown]
  - Metrorrhagia [Unknown]
  - Drug titration error [Unknown]

NARRATIVE: CASE EVENT DATE: 201903
